FAERS Safety Report 15273925 (Version 1)
Quarter: 2018Q3

REPORT INFORMATION
  Report Type: Report from Study
  Country: US (occurrence: US)
  Receive Date: 20180814
  Receipt Date: 20180814
  Transmission Date: 20181010
  Serious: Yes (Hospitalization, Other)
  Sender: FDA-Public Use
  Company Number: US-SUN PHARMACEUTICAL INDUSTRIES LTD-2018US-177216

PATIENT
  Age: 74 Year
  Sex: Female

DRUGS (2)
  1. CLOZAPINE. [Suspect]
     Active Substance: CLOZAPINE
     Indication: BIPOLAR DISORDER
     Dosage: 300 MG, QD (EVERY BEDTIME)
     Route: 048
  2. CLOZAPINE. [Suspect]
     Active Substance: CLOZAPINE
     Dosage: 250 MG, QD (EVERY BEDTIME)
     Route: 048

REACTIONS (2)
  - Pneumonia [Unknown]
  - Drug level increased [Recovering/Resolving]

NARRATIVE: CASE EVENT DATE: 20180627
